FAERS Safety Report 5444336-4 (Version None)
Quarter: 2007Q3

REPORT INFORMATION
  Report Type: 
  Country: None (occurrence: None)
  Receive Date: 20070906
  Receipt Date: 20070830
  Transmission Date: 20080115
  Serious: Yes (Other)
  Sender: FDA-Public Use
  Company Number: PHHO2007JP14496

PATIENT
  Age: 62 Year
  Sex: Female
  Weight: 53 kg

DRUGS (2)
  1. DIOVAN [Suspect]
     Indication: HYPERTENSION
     Route: 048
     Dates: start: 20070209, end: 20070312
  2. DOXAZOSIN MESYLATE [Concomitant]
     Indication: HYPERTENSION

REACTIONS (2)
  - DIZZINESS [None]
  - HYPOTENSION [None]
